FAERS Safety Report 20306415 (Version 1)
Quarter: 2022Q1

REPORT INFORMATION
  Report Type: Spontaneous
  Country: US (occurrence: US)
  Receive Date: 20220106
  Receipt Date: 20220106
  Transmission Date: 20220423
  Serious: No
  Sender: FDA-Public Use
  Company Number: US-PARI RESPIRATORY EQUIPMENT, INC.-2021PAR00041

PATIENT
  Sex: Female
  Weight: 72.472 kg

DRUGS (3)
  1. KITABIS PAK [Suspect]
     Active Substance: TOBRAMYCIN
     Indication: Illness
     Dosage: 300 MG (1 AMPULE) VIA NEBULIZER, 2X/DAY FOR 28 DAYS ON AND 28 DAYS OFF
  2. KITABIS PAK [Suspect]
     Active Substance: TOBRAMYCIN
     Indication: Pseudomonas infection
  3. DULOXETINE HYDROCHLORIDE [Concomitant]
     Active Substance: DULOXETINE HYDROCHLORIDE

REACTIONS (1)
  - Feeling abnormal [Unknown]
